FAERS Safety Report 9086941 (Version 1)
Quarter: 2013Q1

REPORT INFORMATION
  Report Type: Report from Study
  Country: US (occurrence: US)
  Receive Date: 20130130
  Receipt Date: 20130130
  Transmission Date: 20140127
  Serious: Yes (Other)
  Sender: FDA-Public Use
  Company Number: US-ABBOTT-12P-163-0978829-00

PATIENT
  Age: 22 Year
  Sex: Male

DRUGS (2)
  1. HUMIRA [Suspect]
     Indication: SARCOIDOSIS
     Dates: start: 2010
  2. HUMIRA [Suspect]
     Indication: NERVOUS SYSTEM DISORDER

REACTIONS (8)
  - Peritonsillar abscess [Recovered/Resolved]
  - Injection site pain [Unknown]
  - Injection site erythema [Unknown]
  - Injection site pain [Recovered/Resolved]
  - Infectious mononucleosis [Recovered/Resolved]
  - Malaise [Recovered/Resolved]
  - Malaise [Recovered/Resolved]
  - Off label use [Not Recovered/Not Resolved]
